FAERS Safety Report 23297681 (Version 1)
Quarter: 2023Q4

REPORT INFORMATION
  Report Type: Spontaneous
  Country: US (occurrence: US)
  Receive Date: 20231214
  Receipt Date: 20231214
  Transmission Date: 20240110
  Serious: No
  Sender: FDA-Public Use
  Company Number: US-MYLANLABS-2023M1129031

PATIENT
  Age: 80 Year
  Sex: Male
  Weight: 117.93 kg

DRUGS (13)
  1. CYCLOSPORINE [Suspect]
     Active Substance: CYCLOSPORINE
     Indication: Dry eye
     Dosage: UNK
     Route: 065
     Dates: start: 20231201
  2. AMLODIPINE BESYLATE [Concomitant]
     Active Substance: AMLODIPINE BESYLATE
     Indication: Blood cholesterol
     Dosage: UNK
     Route: 065
  3. ELIQUIS [Concomitant]
     Active Substance: APIXABAN
     Indication: Anticoagulant therapy
     Dosage: UNK
     Route: 065
  4. CLARINEX [Concomitant]
     Active Substance: DESLORATADINE
     Indication: Seasonal allergy
     Dosage: UNK
     Route: 065
  5. NEXIUM [Concomitant]
     Active Substance: ESOMEPRAZOLE MAGNESIUM
     Indication: Seasonal allergy
     Dosage: UNK
     Route: 065
  6. SINGULAIR [Concomitant]
     Active Substance: MONTELUKAST SODIUM
     Indication: Insomnia
     Dosage: UNK
     Route: 065
  7. NORCO [Concomitant]
     Active Substance: ACETAMINOPHEN\HYDROCODONE BITARTRATE
     Indication: Osteoarthritis
     Dosage: UNK
     Route: 065
  8. SYNTHROID [Concomitant]
     Active Substance: LEVOTHYROXINE SODIUM
     Indication: Thyroid disorder
     Dosage: UNK
     Route: 065
  9. METOPROLOL [Concomitant]
     Active Substance: METOPROLOL
     Indication: Hypertension
     Dosage: UNK
     Route: 065
  10. MIRABEGRON [Concomitant]
     Active Substance: MIRABEGRON
     Indication: Hypertonic bladder
     Dosage: UNK
     Route: 065
  11. QVAR REDIHALER [Concomitant]
     Active Substance: BECLOMETHASONE DIPROPIONATE
     Indication: Blood cholesterol
     Dosage: UNK
     Route: 065
  12. SUNOSI [Concomitant]
     Active Substance: SOLRIAMFETOL
     Indication: Blood cholesterol
     Dosage: 75 MILLIGRAM
     Route: 065
  13. CRESTOR [Concomitant]
     Active Substance: ROSUVASTATIN CALCIUM
     Indication: Blood cholesterol
     Dosage: UNK
     Route: 065

REACTIONS (1)
  - Eye irritation [Recovering/Resolving]

NARRATIVE: CASE EVENT DATE: 20231201
